FAERS Safety Report 22018284 (Version 3)
Quarter: 2023Q4

REPORT INFORMATION
  Report Type: Report from Study
  Country: US (occurrence: US)
  Receive Date: 20230221
  Receipt Date: 20231030
  Transmission Date: 20240109
  Serious: Yes (Hospitalization)
  Sender: FDA-Public Use
  Company Number: US-BoehringerIngelheim-2023-BI-220334

PATIENT
  Age: 85 Year
  Sex: Male

DRUGS (1)
  1. OFEV [Suspect]
     Active Substance: NINTEDANIB
     Indication: Idiopathic pulmonary fibrosis
     Route: 048
     Dates: start: 20200928

REACTIONS (4)
  - Medical device implantation [Unknown]
  - Internal haemorrhage [Unknown]
  - Diarrhoea [Unknown]
  - Dialysis [Unknown]

NARRATIVE: CASE EVENT DATE: 20231001
